FAERS Safety Report 13128966 (Version 1)
Quarter: 2017Q1

REPORT INFORMATION
  Report Type: Report from Study
  Country: DE (occurrence: DE)
  Receive Date: 20170119
  Receipt Date: 20170119
  Transmission Date: 20170428
  Serious: Yes (Other)
  Sender: FDA-Public Use
  Company Number: DE-ROCHE-1607938

PATIENT
  Age: 74 Year
  Sex: Male
  Weight: 80 kg

DRUGS (4)
  1. ACLASTA [Concomitant]
     Active Substance: ZOLEDRONIC ACID
     Indication: OSTEOPOROSIS
     Route: 042
     Dates: start: 20150513
  2. PREDNISOLON [Concomitant]
     Active Substance: PREDNISOLONE
     Indication: RHEUMATOID ARTHRITIS
     Route: 048
     Dates: start: 20150112
  3. TOCILIZUMAB [Suspect]
     Active Substance: TOCILIZUMAB
     Indication: RHEUMATOID ARTHRITIS
     Route: 058
     Dates: start: 20150112, end: 20150902
  4. PANTOPRAZOL [Concomitant]
     Active Substance: PANTOPRAZOLE SODIUM
     Indication: GASTROOESOPHAGEAL REFLUX DISEASE
     Route: 048

REACTIONS (3)
  - Rash [Recovering/Resolving]
  - Retinal disorder [Unknown]
  - Rash [Unknown]

NARRATIVE: CASE EVENT DATE: 20150130
